FAERS Safety Report 5602700-4 (Version None)
Quarter: 2008Q1

REPORT INFORMATION
  Report Type: 
  Country: None (occurrence: None)
  Receive Date: 20080125
  Receipt Date: 20080116
  Transmission Date: 20080703
  Serious: Yes (Hospitalization)
  Sender: FDA-Public Use
  Company Number: FR-ASTRAZENECA-2008CG00101

PATIENT
  Age: 26876 Day
  Sex: Female

DRUGS (8)
  1. ATACAND [Suspect]
     Indication: HYPERTENSION
     Route: 048
  2. THALIDOMIDE [Suspect]
     Indication: MULTIPLE MYELOMA
     Route: 048
     Dates: start: 20070419, end: 20070423
  3. THALIDOMIDE [Suspect]
     Route: 048
     Dates: start: 20070501, end: 20070605
  4. THALIDOMIDE [Suspect]
     Route: 048
     Dates: start: 20070606
  5. DEXAMETHASONE TAB [Suspect]
     Indication: MULTIPLE MYELOMA
     Dosage: 40 MG DAILY FOUR CONSECUTIVE DAYS A MONTH
     Route: 048
     Dates: start: 20070419
  6. ARANESP [Suspect]
     Indication: ANAEMIA
     Route: 058
     Dates: start: 20070201, end: 20071102
  7. LEXOMIL [Suspect]
     Indication: ANXIETY
     Dosage: 0.25 DF FOUR CONSECUTIVE DAYS A MONTH (TOGETHER WITH DEXAMETHASONE)
  8. CRESTOR [Concomitant]
     Indication: DYSLIPIDAEMIA
     Route: 048

REACTIONS (2)
  - HYPERTENSION [None]
  - TRANSIENT ISCHAEMIC ATTACK [None]
